FAERS Safety Report 9433350 (Version 2)
Quarter: 2014Q1

REPORT INFORMATION
  Report Type: Spontaneous
  Country: US (occurrence: US)
  Receive Date: 20130731
  Receipt Date: 20140331
  Transmission Date: 20141002
  Serious: Yes (Hospitalization, Other)
  Sender: FDA-Public Use
  Company Number: US-009507513-1307USA017094

PATIENT
  Sex: Female
  Weight: 83.9 kg

DRUGS (1)
  1. NUVARING [Suspect]
     Indication: CONTRACEPTION
     Dosage: UNK
     Route: 067
     Dates: start: 201001, end: 20120902

REACTIONS (7)
  - Pulmonary embolism [Unknown]
  - Coagulopathy [Unknown]
  - Depression [Not Recovered/Not Resolved]
  - Adenoidectomy [Unknown]
  - Tonsillectomy [Unknown]
  - Deep vein thrombosis [Unknown]
  - Upper respiratory tract infection [Unknown]
